FAERS Safety Report 19840768 (Version 2)
Quarter: 2021Q4

REPORT INFORMATION
  Report Type: Report from Study
  Country: FR (occurrence: FR)
  Receive Date: 20210915
  Receipt Date: 20211001
  Transmission Date: 20220303
  Serious: Yes (Other)
  Sender: FDA-Public Use
  Company Number: FR-TAKEDA-2021TUS053987

PATIENT
  Age: 82 Year
  Sex: Female

DRUGS (3)
  1. IXAZOMIB [Suspect]
     Active Substance: IXAZOMIB
     Indication: Plasma cell myeloma
     Dosage: 3 MILLIGRAM
     Route: 048
     Dates: start: 20191104, end: 20191207
  2. POMALIDOMIDE [Suspect]
     Active Substance: POMALIDOMIDE
     Indication: Plasma cell myeloma
     Dosage: 4 MILLIGRAM
     Route: 048
     Dates: start: 20191104, end: 20191207
  3. DEXAMETHASONE [Suspect]
     Active Substance: DEXAMETHASONE
     Indication: Plasma cell myeloma
     Dosage: 20 MILLIGRAM
     Route: 048
     Dates: start: 20191104, end: 20191212

REACTIONS (1)
  - Acute leukaemia [Not Recovered/Not Resolved]

NARRATIVE: CASE EVENT DATE: 20210330
